FAERS Safety Report 18302457 (Version 18)
Quarter: 2024Q3

REPORT INFORMATION
  Report Type: Report from Study
  Country: US (occurrence: US)
  Receive Date: 20200923
  Receipt Date: 20240924
  Transmission Date: 20241017
  Serious: Yes (Other)
  Sender: TAKEDA
  Company Number: US-SHIRE-US202030588

PATIENT
  Age: 56 Year
  Sex: Male

DRUGS (6)
  1. HEMOFIL [Suspect]
     Active Substance: ANTIHEMOPHILIC FACTOR HUMAN
     Indication: Haemorrhage
     Dosage: 3000 INTERNATIONAL UNIT
     Route: 042
  2. HEMOFIL [Suspect]
     Active Substance: ANTIHEMOPHILIC FACTOR HUMAN
     Dosage: 6 DOSAGE FORM
     Route: 042
  3. HEMOFIL [Suspect]
     Active Substance: ANTIHEMOPHILIC FACTOR HUMAN
     Dosage: 3500 INTERNATIONAL UNIT
     Route: 042
  4. HEMOFIL [Suspect]
     Active Substance: ANTIHEMOPHILIC FACTOR HUMAN
     Dosage: 3000 INTERNATIONAL UNIT
     Route: 042
  5. HEMOFIL [Suspect]
     Active Substance: ANTIHEMOPHILIC FACTOR HUMAN
     Dosage: 4000 INTERNATIONAL UNIT
     Route: 042
  6. CELEBREX [Suspect]
     Active Substance: CELECOXIB
     Indication: Product used for unknown indication
     Dosage: UNK
     Route: 065

REACTIONS (15)
  - Haemarthrosis [Unknown]
  - Post procedural haemorrhage [Unknown]
  - Soft tissue haemorrhage [Unknown]
  - Haemorrhage [Unknown]
  - Thrombosis [Recovered/Resolved]
  - Blood blister [Unknown]
  - Tongue haemorrhage [Unknown]
  - Contusion [Unknown]
  - Limb injury [Unknown]
  - Muscle strain [Unknown]
  - Pain in extremity [Recovered/Resolved]
  - Gait disturbance [Recovered/Resolved]
  - Peripheral swelling [Unknown]
  - Musculoskeletal stiffness [Unknown]
  - Fall [Unknown]

NARRATIVE: CASE EVENT DATE: 20200912
